FAERS Safety Report 26094273 (Version 1)
Quarter: 2025Q4

REPORT INFORMATION
  Report Type: Spontaneous
  Country: CN (occurrence: CN)
  Receive Date: 20251126
  Receipt Date: 20251126
  Transmission Date: 20260118
  Serious: Yes (Other)
  Sender: NOVARTIS
  Company Number: CN-002147023-NVSC2025CN180900

PATIENT
  Age: 70 Year
  Sex: Male
  Weight: 57.5 kg

DRUGS (5)
  1. SACUBITRIL\VALSARTAN [Suspect]
     Active Substance: SACUBITRIL\VALSARTAN
     Indication: Cardiac failure
     Dosage: 25 MG, BID
     Route: 048
     Dates: start: 20251006, end: 20251007
  2. FUROSEMIDE [Concomitant]
     Active Substance: FUROSEMIDE
     Indication: Drug therapy
     Dosage: 20 MG, BID
     Route: 048
     Dates: start: 20251002, end: 20251008
  3. FUROSEMIDE [Concomitant]
     Active Substance: FUROSEMIDE
     Indication: Diuretic therapy
  4. SPIRONOLACTONE [Concomitant]
     Active Substance: SPIRONOLACTONE
     Indication: Drug therapy
     Dosage: 20 MG, BID
     Route: 048
     Dates: start: 20251002, end: 20251008
  5. SPIRONOLACTONE [Concomitant]
     Active Substance: SPIRONOLACTONE
     Indication: Diuretic therapy

REACTIONS (6)
  - Hypotension [Recovering/Resolving]
  - Asthenia [Recovering/Resolving]
  - Arteriosclerosis coronary artery [Unknown]
  - Condition aggravated [Unknown]
  - Cardiac failure [Unknown]
  - Renal failure [Unknown]

NARRATIVE: CASE EVENT DATE: 20251007
